FAERS Safety Report 5696841-3 (Version None)
Quarter: 2008Q2

REPORT INFORMATION
  Report Type: 
  Country: None (occurrence: None)
  Receive Date: 20080408
  Receipt Date: 20061113
  Transmission Date: 20081010
  Serious: No
  Sender: FDA-Public Use
  Company Number: US-BAYER-US-2006-035475

PATIENT
  Age: 35 Year
  Sex: Female
  Weight: 68 kg

DRUGS (1)
  1. YASMIN [Suspect]
     Indication: ORAL CONTRACEPTION
     Route: 048
     Dates: start: 20060201

REACTIONS (4)
  - DRUG ADMINISTRATION ERROR [None]
  - INFLUENZA [None]
  - METRORRHAGIA [None]
  - WITHDRAWAL BLEED [None]
